FAERS Safety Report 5170546-X (Version None)
Quarter: 2006Q4

REPORT INFORMATION
  Report Type: 
  Country: None (occurrence: None)
  Receive Date: 20061201
  Receipt Date: 20050916
  Transmission Date: 20070319
  Serious: Yes (Hospitalization, Disabling, Other)
  Sender: FDA-Public Use
  Company Number: 2003036224

PATIENT
  Age: 46 Year
  Sex: Male
  Weight: 90 kg

DRUGS (5)
  1. SILDENAFIL CITRATE [Suspect]
     Indication: ERECTILE DYSFUNCTION
     Dosage: 50 MG (AS NECESSARY), ORAL
     Route: 048
     Dates: start: 20020301
  2. UMULINE (INSULIN HUMAN ZINC SUSPENSION) [Concomitant]
  3. HUMALOG [Concomitant]
  4. GLUCOPHAGE [Concomitant]
  5. IRBESARTAN [Concomitant]

REACTIONS (4)
  - BLINDNESS UNILATERAL [None]
  - CONDITION AGGRAVATED [None]
  - DIABETIC GLAUCOMA [None]
  - DIABETIC RETINOPATHY [None]
